FAERS Safety Report 16686613 (Version 1)
Quarter: 2019Q3

REPORT INFORMATION
  Report Type: Spontaneous
  Country: SE (occurrence: SE)
  Receive Date: 20190809
  Receipt Date: 20190809
  Transmission Date: 20191004
  Serious: Yes (Life-Threatening, Hospitalization, Disabling)
  Sender: FDA-Public Use
  Company Number: SE-TEVA-2019-SE-1090282

PATIENT
  Age: 14 Year
  Sex: Male
  Weight: 55 kg

DRUGS (11)
  1. RISPERIDONE. [Suspect]
     Active Substance: RISPERIDONE
     Indication: PSYCHOTIC SYMPTOM
     Dosage: 0,25 MILLIGRAM
     Dates: start: 20160628, end: 20160703
  2. NOZINAN [Concomitant]
     Active Substance: LEVOMEPROMAZINE
     Dates: start: 20160620, end: 20160701
  3. ABILIFY [Concomitant]
     Active Substance: ARIPIPRAZOLE
     Dates: start: 2019
  4. STESOLID 5 MG TABLETT [Concomitant]
     Dosage: 1 TABLETT VID BEHOV H?GST 2 TABLETTER PER DYGN.
  5. THERALEN [Concomitant]
     Active Substance: TRIMEPRAZINE
  6. NOZINAN [Concomitant]
     Active Substance: LEVOMEPROMAZINE
     Dates: start: 20160702, end: 20160703
  7. OLANZAPINE. [Concomitant]
     Active Substance: OLANZAPINE
     Dates: start: 20161225, end: 20161228
  8. ABILIFY [Concomitant]
     Active Substance: ARIPIPRAZOLE
     Dates: start: 20160620, end: 20161220
  9. OLANZAPINE. [Concomitant]
     Active Substance: OLANZAPINE
     Dates: start: 20170103, end: 20170129
  10. MELATONIN [Concomitant]
     Active Substance: MELATONIN
  11. OLANZAPINE. [Concomitant]
     Active Substance: OLANZAPINE
     Dates: start: 20160702, end: 20161224

REACTIONS (6)
  - Mydriasis [Recovered/Resolved with Sequelae]
  - Muscle spasms [Recovered/Resolved with Sequelae]
  - Confusional state [Recovered/Resolved with Sequelae]
  - Product prescribing error [Recovered/Resolved with Sequelae]
  - Dystonia [Recovered/Resolved with Sequelae]
  - Staring [Recovered/Resolved with Sequelae]

NARRATIVE: CASE EVENT DATE: 20160629
